FAERS Safety Report 14120575 (Version 2)
Quarter: 2017Q4

REPORT INFORMATION
  Report Type: Spontaneous
  Country: BR (occurrence: BR)
  Receive Date: 20171024
  Receipt Date: 20171026
  Transmission Date: 20180321
  Serious: Yes (Hospitalization)
  Sender: FDA-Public Use
  Company Number: BR-PFIZER INC-2017440946

PATIENT
  Age: 41 Year
  Sex: Female
  Weight: 40.8 kg

DRUGS (5)
  1. CELECOXIBE TEUTO [Suspect]
     Active Substance: CELECOXIB
     Indication: LYMPHADENOPATHY
     Dosage: 1 CAPSULE , 2X/DAY (EVERY 12 HOURS)
     Dates: start: 20170926
  2. METAMIZOLE [Suspect]
     Active Substance: METAMIZOLE
     Dosage: UNK
  3. NOVALGINA [Concomitant]
     Active Substance: METAMIZOLE SODIUM
     Indication: PYREXIA
  4. CODEINE [Concomitant]
     Active Substance: CODEINE
     Indication: PAIN
     Dosage: EVERY 6 HOURS, AND EACH TABLET SHOULD BE ADMINISTERED 1 HOUR AFTER NOVALGINA
  5. NOVALGINA [Concomitant]
     Active Substance: METAMIZOLE SODIUM
     Indication: PAIN
     Dosage: 1 TABLET EVERY 6 HOURS

REACTIONS (4)
  - Haemorrhage [Recovered/Resolved]
  - Neoplasm progression [Unknown]
  - Haemoptysis [Recovered/Resolved]
  - Wheezing [Unknown]

NARRATIVE: CASE EVENT DATE: 201710
